FAERS Safety Report 20093706 (Version 2)
Quarter: 2021Q4

REPORT INFORMATION
  Report Type: Spontaneous
  Country: IE (occurrence: IE)
  Receive Date: 20211121
  Receipt Date: 20211215
  Transmission Date: 20220303
  Serious: Yes (Other)
  Sender: FDA-Public Use
  Company Number: IE-ROCHE-2960578

PATIENT
  Sex: Male
  Weight: 107 kg

DRUGS (4)
  1. POLIVY [Suspect]
     Active Substance: POLATUZUMAB VEDOTIN-PIIQ
     Indication: Diffuse large B-cell lymphoma recurrent
     Dosage: 140 MG AND 30 MG POWDER FOR CONCENTRATE FOR SOLUTION FOR INFUSION
     Route: 065
  2. POLIVY [Suspect]
     Active Substance: POLATUZUMAB VEDOTIN-PIIQ
     Dosage: 140 MG AND 30 MG POWDER FOR CONCENTRATE FOR SOLUTION FOR INFUSION
     Route: 065
  3. RITUXIMAB [Suspect]
     Active Substance: RITUXIMAB
     Indication: Diffuse large B-cell lymphoma recurrent
     Route: 065
  4. BENDAMUSTINE [Suspect]
     Active Substance: BENDAMUSTINE
     Indication: Diffuse large B-cell lymphoma recurrent
     Dosage: UNK UNK, CYCLIC
     Route: 042

REACTIONS (2)
  - Disease progression [Unknown]
  - Drug ineffective [Unknown]
